FAERS Safety Report 11713364 (Version 4)
Quarter: 2016Q2

REPORT INFORMATION
  Report Type: Spontaneous
  Country: GB (occurrence: GB)
  Receive Date: 20151109
  Receipt Date: 20160402
  Transmission Date: 20160815
  Serious: Yes (Disabling, Other)
  Sender: FDA-Public Use
  Company Number: GB-ACCORD-035167

PATIENT
  Age: 66 Year
  Sex: Female
  Weight: 63 kg

DRUGS (11)
  1. FULTIUM-D3 [Concomitant]
     Indication: MYALGIA
     Route: 048
     Dates: start: 20140129
  2. LANSOPRAZOLE. [Concomitant]
     Active Substance: LANSOPRAZOLE
     Indication: ABDOMINAL DISCOMFORT
     Dates: start: 20091201
  3. ACICLOVIR/ACICLOVIR SODIUM [Concomitant]
     Dates: start: 20120328
  4. SERTRALINE [Suspect]
     Active Substance: SERTRALINE HYDROCHLORIDE
     Indication: DEPRESSION
     Dosage: 75 MG DAILY FROM 29-JUL-2014 TO 13-OCT-2014?PATIENT RECEIVED FROM 04-JUN TO 28-JUL-2014 AT SAME DOS
     Route: 048
     Dates: start: 20141014, end: 20141203
  5. ASPIRIN. [Concomitant]
     Active Substance: ASPIRIN
     Indication: ANGINA PECTORIS
     Dosage: 74 MG, ALTERNATIVE DAYS
     Route: 048
     Dates: start: 20120325
  6. BISOPROLOL [Concomitant]
     Active Substance: BISOPROLOL
     Indication: ANGINA PECTORIS
     Route: 048
     Dates: start: 20070711
  7. IBUPROFEN. [Concomitant]
     Active Substance: IBUPROFEN
     Indication: FIBROMYALGIA
     Dosage: 100 G AS DIRECTED
     Route: 048
     Dates: start: 20120918
  8. ATORVASTATIN/ATORVASTATIN CALCIUM [Concomitant]
     Indication: ANGINA PECTORIS
     Dosage: 1/2 X 10 MG, 1 X/DAY
     Route: 048
     Dates: start: 20030702
  9. GLYCERYL TRINITRATE [Concomitant]
     Active Substance: NITROGLYCERIN
     Route: 060
  10. QUININE [Concomitant]
     Active Substance: QUININE
     Indication: MUSCLE SPASMS
     Dosage: 200 MG, 1 X/DAY AT NIGHT
     Dates: start: 20090406
  11. ZOPICLONE [Concomitant]
     Active Substance: ZOPICLONE
     Dosage: 3.75 MG, 1 X/DAY (NIGHT)
     Dates: start: 20140729

REACTIONS (3)
  - Facial nerve disorder [Not Recovered/Not Resolved]
  - Eyelid ptosis [Not Recovered/Not Resolved]
  - Emotional distress [Not Recovered/Not Resolved]

NARRATIVE: CASE EVENT DATE: 201409
